FAERS Safety Report 18327111 (Version 2)
Quarter: 2020Q4

REPORT INFORMATION
  Report Type: Report from Study
  Country: MX (occurrence: MX)
  Receive Date: 20200929
  Receipt Date: 20201014
  Transmission Date: 20210113
  Serious: Yes (Disabling)
  Sender: FDA-Public Use
  Company Number: NVSC2020MX261963

PATIENT
  Age: 60 Year
  Sex: Male
  Weight: 51 kg

DRUGS (10)
  1. ENTRESTO [Suspect]
     Active Substance: SACUBITRIL\VALSARTAN
     Indication: CARDIOVASCULAR DISORDER
     Dosage: 0.5 DF (50 MG), BID (STARTED 2 YEARS AGO) (? IN THE MORNING AND ? AT NIGHT)
     Route: 065
  2. SPIRONOLACTONE. [Concomitant]
     Active Substance: SPIRONOLACTONE
     Indication: MICTURITION DISORDER
     Dosage: 100 MG, QD
     Route: 048
  3. DIGOXIN. [Concomitant]
     Active Substance: DIGOXIN
     Indication: CARDIAC FAILURE
     Dosage: 0.25 MG, QD
     Route: 048
  4. PEMIX [Concomitant]
     Indication: DYSPEPSIA
     Dosage: 2 DF, QD
     Route: 048
  5. OMEPRAZOLE. [Concomitant]
     Active Substance: OMEPRAZOLE
     Indication: ABDOMINAL DISCOMFORT
     Dosage: 20 MG, QD (1 OR 2)
     Route: 048
  6. NEXIUM SANDOZ [Concomitant]
     Indication: ABDOMINAL DISCOMFORT
     Dosage: 1 DF, QD
     Route: 048
  7. FUROSEMIDE. [Concomitant]
     Active Substance: FUROSEMIDE
     Indication: FLUID RETENTION
     Dosage: 2 DF, QD
     Route: 048
  8. ENTRESTO [Suspect]
     Active Substance: SACUBITRIL\VALSARTAN
     Dosage: 0.25 DF (50 MG), BID (STARTED 2 YEARS AGO) (1/4 IN THE MORNING AND 1/4 AT NIGHT)
     Route: 065
  9. JANUMET [Concomitant]
     Active Substance: METFORMIN HYDROCHLORIDE\SITAGLIPTIN PHOSPHATE
     Indication: DIABETES MELLITUS
     Dosage: 50 MG, QD (3 YEARS AGO)
     Route: 048
  10. ELIQUIS [Concomitant]
     Active Substance: APIXABAN
     Indication: ANTICOAGULANT THERAPY
     Dosage: 5 MG, QD
     Route: 048

REACTIONS (7)
  - Product use in unapproved indication [Unknown]
  - Wrong technique in product usage process [Unknown]
  - Hypotension [Not Recovered/Not Resolved]
  - Drug hypersensitivity [Unknown]
  - Product prescribing error [Unknown]
  - Feeling abnormal [Not Recovered/Not Resolved]
  - Urticaria [Unknown]

NARRATIVE: CASE EVENT DATE: 20200923
